FAERS Safety Report 24126308 (Version 1)
Quarter: 2024Q3

REPORT INFORMATION
  Report Type: Spontaneous
  Country: US (occurrence: US)
  Receive Date: 20240723
  Receipt Date: 20240723
  Transmission Date: 20241017
  Serious: Yes (Other)
  Sender: EPIC PHARM
  Company Number: US-EPICPHARMA-US-2024EPCSPO00817

PATIENT

DRUGS (1)
  1. BUPROPION HYDROCHLORIDE [Suspect]
     Active Substance: BUPROPION HYDROCHLORIDE
     Indication: Depression
     Route: 065

REACTIONS (8)
  - Seizure [Unknown]
  - Suicidal ideation [Unknown]
  - Condition aggravated [Unknown]
  - Inflammation [Unknown]
  - Arthralgia [Unknown]
  - Headache [Unknown]
  - Therapeutic response changed [Unknown]
  - Product substitution issue [Unknown]
